FAERS Safety Report 5590640-9 (Version None)
Quarter: 2008Q1

REPORT INFORMATION
  Report Type: 
  Country: None (occurrence: None)
  Receive Date: 20080114
  Receipt Date: 20080109
  Transmission Date: 20080703
  Serious: Yes (Hospitalization)
  Sender: FDA-Public Use
  Company Number: AU-MERCK-0801AUS00060

PATIENT
  Age: 77 Year
  Sex: Male
  Weight: 111 kg

DRUGS (9)
  1. ZETIA [Suspect]
     Indication: ACUTE MYOCARDIAL INFARCTION
     Route: 048
     Dates: start: 20070712, end: 20070713
  2. ZETIA [Suspect]
     Indication: THROMBOLYSIS
     Route: 048
     Dates: start: 20070712, end: 20070713
  3. ENOXAPARIN SODIUM [Concomitant]
     Route: 065
  4. ATORVASTATIN [Suspect]
     Indication: ACUTE MYOCARDIAL INFARCTION
     Route: 048
     Dates: start: 20070712, end: 20070716
  5. ATORVASTATIN [Suspect]
     Indication: THROMBOLYSIS
     Route: 048
     Dates: start: 20070712, end: 20070716
  6. ASPIRIN [Concomitant]
     Route: 065
  7. CLOPIDOGREL BISULFATE [Concomitant]
     Route: 065
  8. METOPROLOL SUCCINATE [Concomitant]
     Route: 065
  9. PERINDOPRIL [Concomitant]
     Route: 065

REACTIONS (5)
  - BLOOD CREATINE PHOSPHOKINASE INCREASED [None]
  - MYOGLOBINURIA [None]
  - MYOPATHY [None]
  - MYOSITIS [None]
  - PURPURA [None]
